FAERS Safety Report 13515239 (Version 12)
Quarter: 2017Q4

REPORT INFORMATION
  Report Type: Spontaneous
  Country: US (occurrence: US)
  Receive Date: 20170504
  Receipt Date: 20171222
  Transmission Date: 20180320
  Serious: Yes (Hospitalization, Other)
  Sender: FDA-Public Use
  Company Number: US-CLOVIS ONCOLOGY-CLO-2017-000190

PATIENT
  Age: 58 Year
  Sex: Female

DRUGS (8)
  1. RUBRACA [Suspect]
     Active Substance: RUCAPARIB CAMSYLATE
     Dosage: 600 MG, BID
     Route: 048
     Dates: start: 20170317, end: 20170720
  2. RUBRACA [Suspect]
     Active Substance: RUCAPARIB CAMSYLATE
     Dosage: 600 MG, BID
     Route: 048
     Dates: start: 20170530
  3. RUBRACA [Suspect]
     Active Substance: RUCAPARIB CAMSYLATE
     Dosage: 400 MG, BID
     Route: 048
     Dates: start: 20171110, end: 2017
  4. RUBRACA [Suspect]
     Active Substance: RUCAPARIB CAMSYLATE
     Dosage: UNK
  5. RUBRACA [Suspect]
     Active Substance: RUCAPARIB CAMSYLATE
     Indication: OVARIAN CANCER
     Dosage: 600 MG, QD
     Route: 048
     Dates: start: 20170317, end: 20170720
  6. RUBRACA [Suspect]
     Active Substance: RUCAPARIB CAMSYLATE
     Dosage: 400 MG, BID
     Route: 048
     Dates: start: 20170928, end: 20171026
  7. TYLENOL [Suspect]
     Active Substance: ACETAMINOPHEN
     Indication: PRODUCT USED FOR UNKNOWN INDICATION
  8. RUBRACA [Suspect]
     Active Substance: RUCAPARIB CAMSYLATE
     Dosage: 500 MG, BID
     Route: 048
     Dates: start: 20170817, end: 20170920

REACTIONS (19)
  - Anaemia [Unknown]
  - Epistaxis [Unknown]
  - Tremor [Unknown]
  - Dysgeusia [Unknown]
  - Underdose [Unknown]
  - Blood count abnormal [Unknown]
  - Malignant neoplasm progression [Unknown]
  - Neck pain [Unknown]
  - Fatigue [Not Recovered/Not Resolved]
  - Colostomy [Unknown]
  - Hepatic enzyme increased [Unknown]
  - Blood creatinine increased [Unknown]
  - Intestinal obstruction [Recovered/Resolved]
  - Constipation [Unknown]
  - Stent placement [Unknown]
  - Headache [Not Recovered/Not Resolved]
  - Nausea [Unknown]
  - Drug dose omission [Unknown]
  - Stoma site haemorrhage [Unknown]

NARRATIVE: CASE EVENT DATE: 2017
